FAERS Safety Report 4354519-2 (Version None)
Quarter: 2004Q2

REPORT INFORMATION
  Report Type: 
  Country: None (occurrence: None)
  Receive Date: 20040503
  Receipt Date: 20040330
  Transmission Date: 20050107
  Serious: Yes (Hospitalization)
  Sender: FDA-Public Use
  Company Number: 2004-03-2671

PATIENT
  Age: 81 Year
  Sex: Female

DRUGS (5)
  1. ALBUTEROL [Suspect]
     Indication: ASTHMA
     Dosage: 2 PRN (17 GM) ORAL AER IN
     Route: 055
  2. SINGULAIR [Concomitant]
  3. SYNTHROID [Concomitant]
  4. INDAPAMINE [Concomitant]
  5. UNIPHYL [Concomitant]

REACTIONS (3)
  - DRUG INEFFECTIVE [None]
  - DYSPNOEA [None]
  - FATIGUE [None]
